FAERS Safety Report 14983888 (Version 1)
Quarter: 2018Q2

REPORT INFORMATION
  Report Type: Spontaneous
  Country: US (occurrence: US)
  Receive Date: 20180607
  Receipt Date: 20180607
  Transmission Date: 20180711
  Serious: No
  Sender: FDA-Public Use
  Company Number: US-TARO-2017TAR00378

PATIENT
  Sex: Male

DRUGS (1)
  1. BETAMETHASONE DIPROPIONATE CREAM USP 0.05% [Suspect]
     Active Substance: BETAMETHASONE DIPROPIONATE
     Dosage: UNK UNK, ONCE
     Route: 061

REACTIONS (3)
  - Rash [Unknown]
  - Erythema [Unknown]
  - Heart rate increased [Unknown]
